FAERS Safety Report 8496467-2 (Version None)
Quarter: 2012Q3

REPORT INFORMATION
  Report Type: 
  Country: None (occurrence: None)
  Receive Date: 20120709
  Receipt Date: 20120626
  Transmission Date: 20120928
  Serious: Yes (Hospitalization)
  Sender: FDA-Public Use
  Company Number: BR-NOVOPROD-342872

PATIENT
  Age: 35 Year
  Sex: Female
  Weight: 92.6 kg

DRUGS (2)
  1. VICTOZA [Suspect]
     Indication: OBESITY
     Dosage: 0.6 MG, QD
     Dates: start: 20110704, end: 20110711
  2. VICTOZA [Suspect]
     Dosage: 3 MG, QD
     Route: 058
     Dates: start: 20110804, end: 20111209

REACTIONS (1)
  - CHOLECYSTITIS ACUTE [None]
